FAERS Safety Report 16594655 (Version 1)
Quarter: 2019Q3

REPORT INFORMATION
  Report Type: Spontaneous
  Country: IT (occurrence: IT)
  Receive Date: 20190718
  Receipt Date: 20190718
  Transmission Date: 20191004
  Serious: Yes (Other)
  Sender: FDA-Public Use
  Company Number: IT-PFIZER INC-2019303957

PATIENT
  Age: 80 Year
  Sex: Female

DRUGS (1)
  1. TORVAST [Suspect]
     Active Substance: ATORVASTATIN
     Indication: CAROTID ARTERY STENOSIS
     Dosage: 20 MG
     Route: 048
     Dates: start: 20190506, end: 20190506

REACTIONS (5)
  - Tremor [Recovered/Resolved]
  - Cough [Recovered/Resolved]
  - Urticaria [Recovered/Resolved]
  - Dyspnoea [Recovered/Resolved]
  - Gait disturbance [Recovered/Resolved]

NARRATIVE: CASE EVENT DATE: 20190506
